FAERS Safety Report 15361554 (Version 2)
Quarter: 2018Q3

REPORT INFORMATION
  Report Type: Report from Study
  Country: CN (occurrence: CN)
  Receive Date: 20180907
  Receipt Date: 20180919
  Transmission Date: 20181010
  Serious: Yes (Hospitalization)
  Sender: FDA-Public Use
  Company Number: CN-BAYER-2018-161398

PATIENT
  Sex: Male

DRUGS (1)
  1. NEXAVAR [Suspect]
     Active Substance: SORAFENIB
     Indication: HEPATOCELLULAR CARCINOMA
     Dosage: 0.4 G, BID
     Route: 048
     Dates: start: 20180626, end: 201808

REACTIONS (1)
  - Haematemesis [Not Recovered/Not Resolved]

NARRATIVE: CASE EVENT DATE: 201808
